FAERS Safety Report 6348769-3 (Version None)
Quarter: 2009Q3

REPORT INFORMATION
  Report Type: 
  Country: None (occurrence: None)
  Receive Date: 20090911
  Receipt Date: 20090902
  Transmission Date: 20100115
  Serious: Yes (Other)
  Sender: FDA-Public Use
  Company Number: IE-ASTRAZENECA-2009SE11372

PATIENT
  Age: 70 Year
  Sex: Female

DRUGS (6)
  1. ZESTRIL [Suspect]
     Indication: HYPERTENSION
     Route: 048
  2. DIOVAN [Concomitant]
     Route: 065
  3. CARDURA [Concomitant]
     Route: 065
  4. BUMEX [Concomitant]
     Route: 065
  5. LIPITOR [Concomitant]
     Route: 065
  6. ASPIRIN [Concomitant]
     Route: 065

REACTIONS (3)
  - FATIGUE [None]
  - IMMUNOGLOBULINS INCREASED [None]
  - TENDERNESS [None]
